FAERS Safety Report 9422468 (Version 1)
Quarter: 2013Q3

REPORT INFORMATION
  Report Type: Report from Study
  Country: FR (occurrence: FR)
  Receive Date: 20130726
  Receipt Date: 20130726
  Transmission Date: 20140515
  Serious: Yes (Other)
  Sender: FDA-Public Use
  Company Number: FR-SANOFI-AVENTIS-2013SA073214

PATIENT
  Age: 24 Year
  Sex: Male

DRUGS (2)
  1. PRIMAQUINE [Suspect]
     Indication: PLASMODIUM VIVAX INFECTION
     Route: 065
     Dates: start: 20130329, end: 20130411
  2. ARTESUNATE/PYRONARIDINE TETRAPHOSPHATE [Suspect]
     Indication: PLASMODIUM VIVAX INFECTION
     Route: 065
     Dates: start: 20130329, end: 20130411

REACTIONS (1)
  - Hand dermatitis [Recovered/Resolved]
